FAERS Safety Report 9362734 (Version 2)
Quarter: 2013Q3

REPORT INFORMATION
  Report Type: Spontaneous
  Country: AU (occurrence: AU)
  Receive Date: 20130622
  Receipt Date: 20130703
  Transmission Date: 20140515
  Serious: Yes (Death)
  Sender: FDA-Public Use
  Company Number: AU-009507513-1306AUS007563

PATIENT
  Age: 58 Year
  Sex: Male

DRUGS (1)
  1. TEMODAL [Suspect]
     Route: 048

REACTIONS (1)
  - Death [Fatal]
